FAERS Safety Report 4520885-8 (Version None)
Quarter: 2004Q4

REPORT INFORMATION
  Report Type: 
  Country: None (occurrence: None)
  Receive Date: 20041206
  Receipt Date: 20041123
  Transmission Date: 20050328
  Serious: No
  Sender: FDA-Public Use
  Company Number: 04H-163-0281783-00

PATIENT
  Age: 91 Year
  Sex: Female

DRUGS (1)
  1. MORPHINE  SULFATE 1MG/ML INJ. PRESERV. FRE, USP, 30ML PCA ABBOJECT (MO [Suspect]
     Dosage: 30 MG
     Dates: start: 20041121

REACTIONS (8)
  - BLOOD PRESSURE DECREASED [None]
  - COMA [None]
  - DEPRESSION [None]
  - DEVICE FAILURE [None]
  - HYPERTENSION [None]
  - MEDICATION ERROR [None]
  - OVERDOSE [None]
  - RESPIRATORY RATE DECREASED [None]
